FAERS Safety Report 17231871 (Version 3)
Quarter: 2021Q2

REPORT INFORMATION
  Report Type: Spontaneous
  Country: US (occurrence: US)
  Receive Date: 20200103
  Receipt Date: 20210408
  Transmission Date: 20210716
  Serious: No
  Sender: FDA-Public Use
  Company Number: US-PFIZER INC-2019563285

PATIENT
  Age: 22 Year
  Sex: Female

DRUGS (3)
  1. TRI?SPRINTEC [Concomitant]
     Active Substance: ETHINYL ESTRADIOL\NORGESTIMATE
     Dosage: UNK
  2. XELJANZ XR [Suspect]
     Active Substance: TOFACITINIB CITRATE
     Dosage: 11 MG
     Dates: start: 20191106
  3. IRON [Concomitant]
     Active Substance: IRON
     Dosage: UNK

REACTIONS (5)
  - Oropharyngeal pain [Unknown]
  - Nausea [Unknown]
  - Intentional dose omission [Unknown]
  - Nasal congestion [Unknown]
  - Rhinorrhoea [Unknown]
